FAERS Safety Report 15681984 (Version 1)
Quarter: 2018Q4

REPORT INFORMATION
  Report Type: Spontaneous
  Country: US (occurrence: US)
  Receive Date: 20181203
  Receipt Date: 20181203
  Transmission Date: 20190205
  Serious: No
  Sender: FDA-Public Use
  Company Number: US-ASTRAZENECA-2018SF40419

PATIENT
  Sex: Female
  Weight: 48.1 kg

DRUGS (16)
  1. METOPROLOL. [Suspect]
     Active Substance: METOPROLOL
     Indication: BLOOD PRESSURE MEASUREMENT
     Route: 048
     Dates: start: 20181023
  2. SYMBICORT [Suspect]
     Active Substance: BUDESONIDE\FORMOTEROL FUMARATE DIHYDRATE
     Indication: CHRONIC OBSTRUCTIVE PULMONARY DISEASE
     Dosage: 160/4.5 MCG
     Route: 055
     Dates: start: 201407, end: 20181031
  3. DUONEB [Concomitant]
     Active Substance: ALBUTEROL SULFATE\IPRATROPIUM BROMIDE
  4. MULTIPLE VITAMIN [Concomitant]
     Active Substance: VITAMINS
  5. SYMBICORT [Suspect]
     Active Substance: BUDESONIDE\FORMOTEROL FUMARATE DIHYDRATE
     Indication: CHRONIC OBSTRUCTIVE PULMONARY DISEASE
     Dosage: 160/4.5 MCGS 2 PUFF TWICE DAILY
     Route: 055
     Dates: start: 201209, end: 201407
  6. TYLENOL EXTRA STRENGTH [Concomitant]
     Active Substance: ACETAMINOPHEN
  7. SYMBICORT [Suspect]
     Active Substance: BUDESONIDE\FORMOTEROL FUMARATE DIHYDRATE
     Indication: EMPHYSEMA
     Dosage: 160/4.5 MCG
     Route: 055
     Dates: start: 201407, end: 20181031
  8. LISINOPRIL. [Suspect]
     Active Substance: LISINOPRIL
     Indication: BLOOD PRESSURE MEASUREMENT
     Dosage: 20/12.5 MG DAILY
     Route: 048
     Dates: start: 201407
  9. SYMBICORT [Suspect]
     Active Substance: BUDESONIDE\FORMOTEROL FUMARATE DIHYDRATE
     Indication: EMPHYSEMA
     Dosage: 160/4.5 MCGS 2 PUFF TWICE DAILY
     Route: 055
     Dates: start: 201209, end: 201407
  10. LISINOPRIL. [Suspect]
     Active Substance: LISINOPRIL
     Indication: BLOOD PRESSURE MEASUREMENT
     Route: 048
     Dates: start: 20181024
  11. LISINOPRIL-HYDROCHLOROTHIAZIDE [Concomitant]
     Active Substance: HYDROCHLOROTHIAZIDE\LISINOPRIL
     Dosage: 20-12.5 MG
  12. VITAMIN C [Concomitant]
     Active Substance: ASCORBIC ACID
  13. CALCIUM [Concomitant]
     Active Substance: CALCIUM
  14. SYMBICORT [Suspect]
     Active Substance: BUDESONIDE\FORMOTEROL FUMARATE DIHYDRATE
     Indication: BRONCHOSPASM
     Dosage: 160/4.5 MCGS 2 PUFF TWICE DAILY
     Route: 055
     Dates: start: 201209, end: 201407
  15. SYMBICORT [Suspect]
     Active Substance: BUDESONIDE\FORMOTEROL FUMARATE DIHYDRATE
     Indication: BRONCHOSPASM
     Dosage: 160/4.5 MCG
     Route: 055
     Dates: start: 201407, end: 20181031
  16. METOPROLOL. [Suspect]
     Active Substance: METOPROLOL
     Indication: BLOOD PRESSURE MEASUREMENT
     Route: 048
     Dates: start: 201407

REACTIONS (5)
  - Cataract [Unknown]
  - Intentional product misuse [Unknown]
  - Memory impairment [Unknown]
  - Device malfunction [Unknown]
  - Product dose omission [Unknown]
